FAERS Safety Report 20263355 (Version 1)
Quarter: 2021Q4

REPORT INFORMATION
  Report Type: Spontaneous
  Country: US (occurrence: US)
  Receive Date: 20211231
  Receipt Date: 20211231
  Transmission Date: 20220303
  Serious: No
  Sender: FDA-Public Use
  Company Number: US-SA-SAC20211228000580

PATIENT
  Sex: Male

DRUGS (3)
  1. DUPIXENT [Suspect]
     Active Substance: DUPILUMAB
     Indication: Chronic rhinosinusitis with nasal polyps
     Dosage: 300 MG, QOW
     Route: 058
     Dates: start: 202105
  2. VACUNA COVID-19 PFIZER BIONTECH [Concomitant]
  3. SINGULAIR [Concomitant]
     Active Substance: MONTELUKAST SODIUM
     Dosage: 10 MG
     Route: 048

REACTIONS (1)
  - Nasal polypectomy [Unknown]

NARRATIVE: CASE EVENT DATE: 20210101
